FAERS Safety Report 6150012-5 (Version None)
Quarter: 2009Q2

REPORT INFORMATION
  Report Type: 
  Country: None (occurrence: None)
  Receive Date: 20090409
  Receipt Date: 20090406
  Transmission Date: 20091009
  Serious: Yes (Death)
  Sender: FDA-Public Use
  Company Number: B0567725A

PATIENT
  Sex: Male

DRUGS (1)
  1. RELENZA [Suspect]
     Indication: INFLUENZA
     Dosage: 10MG TWICE PER DAY
     Route: 055
     Dates: start: 20090316, end: 20090317

REACTIONS (5)
  - ACUTE RESPIRATORY DISTRESS SYNDROME [None]
  - CARDIO-RESPIRATORY ARREST [None]
  - DISSEMINATED INTRAVASCULAR COAGULATION [None]
  - ILL-DEFINED DISORDER [None]
  - RENAL TUBULAR NECROSIS [None]
